FAERS Safety Report 11389805 (Version 4)
Quarter: 2016Q2

REPORT INFORMATION
  Report Type: Report from Study
  Country: CA (occurrence: CA)
  Receive Date: 20150817
  Receipt Date: 20160505
  Transmission Date: 20160815
  Serious: Yes (Death, Hospitalization, Other)
  Sender: FDA-Public Use
  Company Number: CA-ROCHE-1604212

PATIENT
  Age: 83 Year
  Sex: Male

DRUGS (10)
  1. CITALOPRAM [Concomitant]
     Active Substance: CITALOPRAM HYDROBROMIDE
  2. RABEPRAZOLE [Concomitant]
     Active Substance: RABEPRAZOLE
  3. APO-HYDROXYQUINE [Concomitant]
  4. ACTEMRA [Suspect]
     Active Substance: TOCILIZUMAB
     Route: 042
     Dates: start: 20150206
  5. RAMIPRIL. [Concomitant]
     Active Substance: RAMIPRIL
  6. JANUVIA [Concomitant]
     Active Substance: SITAGLIPTIN PHOSPHATE
  7. AMLODIPINE [Concomitant]
     Active Substance: AMLODIPINE BESYLATE
  8. LEFLUNOMIDE. [Concomitant]
     Active Substance: LEFLUNOMIDE
  9. ACTEMRA [Suspect]
     Active Substance: TOCILIZUMAB
     Indication: RHEUMATOID ARTHRITIS
     Route: 042
     Dates: start: 20141006, end: 20160122
  10. ACTEMRA [Suspect]
     Active Substance: TOCILIZUMAB
     Route: 042
     Dates: start: 20141104

REACTIONS (6)
  - Oxygen saturation abnormal [Unknown]
  - Acute kidney injury [Unknown]
  - Nasopharyngitis [Not Recovered/Not Resolved]
  - Cerebrovascular accident [Fatal]
  - Infectious pleural effusion [Not Recovered/Not Resolved]
  - Pneumonia [Not Recovered/Not Resolved]

NARRATIVE: CASE EVENT DATE: 201504
